FAERS Safety Report 21739766 (Version 1)
Quarter: 2022Q4

REPORT INFORMATION
  Report Type: Spontaneous
  Country: CH (occurrence: CH)
  Receive Date: 20221216
  Receipt Date: 20221216
  Transmission Date: 20230112
  Serious: Yes (Hospitalization, Other)
  Sender: FDA-Public Use
  Company Number: CH-AMGEN-CHESP2022212942

PATIENT
  Age: 88 Year
  Sex: Female
  Weight: 66 kg

DRUGS (8)
  1. ARANESP [Suspect]
     Active Substance: DARBEPOETIN ALFA
     Indication: Nephrogenic anaemia
     Dosage: 100 MICROGRAM, QWK
     Route: 058
     Dates: start: 202206, end: 20220914
  2. ELIQUIS [Concomitant]
     Active Substance: APIXABAN
     Dosage: 2.5 MILLIGRAM, Q12H
     Route: 048
  3. CARDIPLANT [Concomitant]
     Dosage: 450 MILLIGRAM, Q12H
     Route: 048
  4. NEBIVOLOL [Concomitant]
     Active Substance: NEBIVOLOL
     Dosage: 5 MILLIGRAM, QD
     Route: 048
  5. PEMZEK [Concomitant]
     Dosage: 16MG TABL. 1.5 - 0 - 1 -0
     Route: 048
  6. ROSUVASTAX [Concomitant]
     Dosage: 20 MILLIGRAM, QD
     Route: 048
  7. LERCANIDIPINE HYDROCHLORIDE [Concomitant]
     Active Substance: LERCANIDIPINE HYDROCHLORIDE
     Dosage: 10MG TABL. 1-0-2-0
     Route: 048
  8. CHOLECALCIFEROL [Concomitant]
     Active Substance: CHOLECALCIFEROL
     Dosage: 0.7 ML MONDAYS AND FRIDAYS
     Route: 048

REACTIONS (3)
  - Hypertensive urgency [Recovering/Resolving]
  - Polycythaemia [Unknown]
  - Overdose [Recovering/Resolving]

NARRATIVE: CASE EVENT DATE: 20220601
